FAERS Safety Report 19753246 (Version 2)
Quarter: 2021Q3

REPORT INFORMATION
  Report Type: Report from Study
  Country: AR (occurrence: AR)
  Receive Date: 20210826
  Receipt Date: 20210902
  Transmission Date: 20211014
  Serious: Yes (Hospitalization)
  Sender: FDA-Public Use
  Company Number: AR-TAIHO ONCOLOGY  INC-IM-2021-00503

PATIENT
  Age: 45 Year
  Sex: Female

DRUGS (3)
  1. OMEPRAZOLE SODIUM [Concomitant]
     Active Substance: OMEPRAZOLE SODIUM
     Indication: PRODUCT USED FOR UNKNOWN INDICATION
     Dosage: 20 MG, QD
     Route: 048
  2. LONSURF [Suspect]
     Active Substance: TIPIRACIL HYDROCHLORIDE\TRIFLURIDINE
     Indication: COLORECTAL CANCER METASTATIC
     Dosage: 120 MG, DAILY, ON DAYS 1?5 AND 8?12 OF EACH 28?DAY CYCLE
     Route: 048
     Dates: start: 20210104, end: 20210619
  3. LONSURF [Suspect]
     Active Substance: TIPIRACIL HYDROCHLORIDE\TRIFLURIDINE
     Dosage: 90 MG, DAILY, ON DAYS 1?5 AND 8?12 OF EACH 28?DAY CYCLE
     Route: 048
     Dates: start: 202106, end: 20210815

REACTIONS (1)
  - Drug-induced liver injury [Recovered/Resolved]

NARRATIVE: CASE EVENT DATE: 20210720
